FAERS Safety Report 11815662 (Version 1)
Quarter: 2015Q4

REPORT INFORMATION
  Report Type: Spontaneous
  Country: IT (occurrence: IT)
  Receive Date: 20151209
  Receipt Date: 20151209
  Transmission Date: 20160305
  Serious: Yes (Hospitalization)
  Sender: FDA-Public Use
  Company Number: IT-PFIZER INC-2015431826

PATIENT
  Age: 36 Year
  Sex: Female

DRUGS (2)
  1. MEDROL [Suspect]
     Active Substance: METHYLPREDNISOLONE
     Dosage: 48 MG, TOTAL
     Route: 048
     Dates: start: 20150419, end: 20150419
  2. ANTISPASMINA COLICA [Suspect]
     Active Substance: BELLADONNA LEAF\PAPAVERINE HYDROCHLORIDE
     Dosage: 21 DF, TOTAL
     Route: 048
     Dates: start: 20150419, end: 20150419

REACTIONS (3)
  - Dizziness [Recovered/Resolved]
  - Drug abuse [Recovered/Resolved]
  - Overdose [Recovered/Resolved]

NARRATIVE: CASE EVENT DATE: 20150419
